FAERS Safety Report 9291320 (Version 1)
Quarter: 2012Q4

REPORT INFORMATION
  Report Type: Spontaneous
  Country: CN (occurrence: None)
  Receive Date: 20121018
  Receipt Date: 20121018
  Transmission Date: 20130627
  Serious: Yes (Hospitalization)
  Sender: FDA-Public Use
  Company Number: CTI_01422_2011

PATIENT
  Age: 22 Month
  Sex: Female

DRUGS (3)
  1. CEFACLOR [Suspect]
     Indication: TONSILLITIS
     Route: 048
     Dates: start: 20111203, end: 20111207
  2. VITAMIN C POWDER-NEEDLE LG + 5% GLUCOSE INJECTION [Concomitant]
  3. IBUPROFEN SUSPENSION [Concomitant]

REACTIONS (2)
  - Gastroenteritis rotavirus [None]
  - Nosocomial infection [None]
